FAERS Safety Report 5006484-2 (Version None)
Quarter: 2006Q2

REPORT INFORMATION
  Report Type: 
  Country: None (occurrence: None)
  Receive Date: 20060516
  Receipt Date: 20060502
  Transmission Date: 20061013
  Serious: Yes (Hospitalization, Disabling, Other)
  Sender: FDA-Public Use
  Company Number: GB200605000623

PATIENT
  Age: 59 Year
  Sex: Female
  Weight: 51.8 kg

DRUGS (5)
  1. GEMZAR [Suspect]
     Indication: NON-SMALL CELL LUNG CANCER
     Dosage: 1940 MG, UNK, INTRAVENOUS
     Route: 042
     Dates: start: 20060223, end: 20060323
  2. CARBOPLATIN [Concomitant]
  3. DEXAMETHASONE [Concomitant]
  4. ONDANSETRON [Concomitant]
  5. METOCLOPRAMIDE [Concomitant]

REACTIONS (2)
  - EXTREMITY NECROSIS [None]
  - RAYNAUD'S PHENOMENON [None]
